FAERS Safety Report 7772315-0 (Version None)
Quarter: 2011Q3

REPORT INFORMATION
  Report Type: 
  Country: None (occurrence: None)
  Receive Date: 20110922
  Receipt Date: 20090720
  Transmission Date: 20111222
  Serious: No
  Sender: FDA-Public Use
  Company Number: US-ASTRAZENECA-2006UW22796

PATIENT
  Age: 664 Month
  Sex: Male
  Weight: 83 kg

DRUGS (11)
  1. SIMVASTATIN [Concomitant]
  2. CYMBALTA [Concomitant]
     Dates: start: 20040101
  3. TRAZODONE HYDROCHLORIDE [Concomitant]
     Dates: start: 20020101, end: 20021001
  4. SEROQUEL [Suspect]
     Indication: POST-TRAUMATIC STRESS DISORDER
     Route: 048
     Dates: start: 20040601
  5. SEROQUEL [Suspect]
     Indication: SLEEP DISORDER
     Route: 048
     Dates: start: 20040601
  6. SEROQUEL [Suspect]
     Dosage: 12.5-25 MG
     Route: 048
     Dates: start: 20040716, end: 20060101
  7. SEROQUEL [Suspect]
     Dosage: 12.5-25 MG
     Route: 048
     Dates: start: 20040716, end: 20060101
  8. SERTRALINE HYDROCHLORIDE [Concomitant]
     Dates: start: 20021001
  9. ZYPREXA [Concomitant]
     Indication: ANXIETY
     Dates: start: 20021001, end: 20030601
  10. SERTRALINE HYDROCHLORIDE [Concomitant]
     Dates: start: 20030801
  11. WELLBUTRIN [Concomitant]
     Dates: start: 20060101

REACTIONS (8)
  - MITRAL VALVE DISEASE [None]
  - HYPERCHOLESTEROLAEMIA [None]
  - TYPE 2 DIABETES MELLITUS [None]
  - CHEST PAIN [None]
  - HYPERLIPIDAEMIA [None]
  - OBESITY [None]
  - CARDIAC MURMUR [None]
  - BLOOD CHOLESTEROL INCREASED [None]
